FAERS Safety Report 12489008 (Version 1)
Quarter: 2016Q2

REPORT INFORMATION
  Report Type: Spontaneous
  Country: TN (occurrence: TN)
  Receive Date: 20160622
  Receipt Date: 20160622
  Transmission Date: 20160815
  Serious: Yes (Death, Hospitalization)
  Sender: FDA-Public Use
  Company Number: TN-MYLANLABS-2016M1025539

PATIENT

DRUGS (1)
  1. METHOTREXATE [Suspect]
     Active Substance: METHOTREXATE
     Indication: ECTOPIC PREGNANCY TERMINATION
     Dosage: 44 MG/M2, TOTAL
     Route: 030
     Dates: start: 20130303

REACTIONS (9)
  - Renal failure [Unknown]
  - Cholestasis [Unknown]
  - Septic shock [Fatal]
  - Skin lesion [Unknown]
  - Hepatocellular injury [Unknown]
  - Bone marrow failure [Unknown]
  - Toxicity to various agents [Unknown]
  - Diarrhoea haemorrhagic [Unknown]
  - Mucosal inflammation [Unknown]
